FAERS Safety Report 20887413 (Version 1)
Quarter: 2022Q2

REPORT INFORMATION
  Report Type: Other
  Country: CA (occurrence: CA)
  Receive Date: 20220528
  Receipt Date: 20220528
  Transmission Date: 20220721
  Serious: Yes (Other)
  Sender: FDA-Public Use
  Company Number: None

PATIENT

DRUGS (14)
  1. BUSULFAN [Suspect]
     Active Substance: BUSULFAN
     Indication: Follicle centre lymphoma, follicular grade I, II, III
  2. FLUDARA [Suspect]
     Active Substance: FLUDARABINE PHOSPHATE
     Indication: Follicle centre lymphoma, follicular grade I, II, III
     Route: 042
  3. PREDNISONE [Suspect]
     Active Substance: PREDNISONE
     Indication: Follicle centre lymphoma, follicular grade I, II, III
  4. RITUXAN [Suspect]
     Active Substance: RITUXIMAB
     Indication: Follicle centre lymphoma, follicular grade I, II, III
     Route: 042
  5. ZEVALIN [Suspect]
     Active Substance: IBRITUMOMAB TIUXETAN
     Indication: Follicle centre lymphoma, follicular grade I, II, III
     Route: 042
  6. RITUXIMAB [Suspect]
     Active Substance: RITUXIMAB
     Indication: Follicle centre lymphoma, follicular grade I, II, III
     Route: 042
  7. CARBOPLATIN [Concomitant]
     Active Substance: CARBOPLATIN
  8. CISPLATIN [Concomitant]
     Active Substance: CISPLATIN
  9. CYCLOPHOSPHAMIDE [Concomitant]
     Active Substance: CYCLOPHOSPHAMIDE
  10. DOXORUBICIN HYDROCHLORIDE [Concomitant]
     Active Substance: DOXORUBICIN HYDROCHLORIDE
  11. ETOPOSIDE [Concomitant]
     Active Substance: ETOPOSIDE
  12. IFOSFAMIDE [Concomitant]
     Active Substance: IFOSFAMIDE
     Route: 042
  13. GRANULOCYTE COLONY STIMULATING FACT [Concomitant]
  14. VINCRISTINE SULFATE [Concomitant]
     Active Substance: VINCRISTINE SULFATE

REACTIONS (1)
  - Progressive multifocal leukoencephalopathy [Unknown]
